FAERS Safety Report 9274592 (Version 3)
Quarter: 2013Q2

REPORT INFORMATION
  Report Type: Report from Study
  Country: ES (occurrence: ES)
  Receive Date: 20130507
  Receipt Date: 20130523
  Transmission Date: 20140414
  Serious: Yes (Hospitalization)
  Sender: FDA-Public Use
  Company Number: ES-ROCHE-1221809

PATIENT
  Age: 69 Year
  Sex: Female
  Weight: 51.6 kg

DRUGS (8)
  1. TRASTUZUMAB [Suspect]
     Indication: BREAST CANCER
     Dosage: LAST DOSE PRIOR TO SAE ON 22/APR/2013
     Route: 042
     Dates: start: 20130422
  2. LETROZOLE [Suspect]
     Indication: BREAST CANCER
     Dosage: LAST DOSE PRIOR TO SAE ON 30/APR/2013
     Route: 048
     Dates: start: 20130422
  3. EUTIROX [Concomitant]
     Route: 065
     Dates: start: 19880630
  4. CARDYL [Concomitant]
     Route: 065
     Dates: start: 20040622
  5. RANITIDINA [Concomitant]
     Route: 065
     Dates: start: 20130430
  6. HIDROFEROL [Concomitant]
     Route: 065
     Dates: start: 20130409
  7. NIMODIPINE [Concomitant]
     Route: 065
     Dates: start: 20130409
  8. ZOLEDRONIC ACID [Concomitant]
     Route: 065
     Dates: start: 20120409

REACTIONS (1)
  - Chest pain [Not Recovered/Not Resolved]
